FAERS Safety Report 7485011-4 (Version None)
Quarter: 2011Q2

REPORT INFORMATION
  Report Type: 
  Country: None (occurrence: None)
  Receive Date: 20110517
  Receipt Date: 20110504
  Transmission Date: 20111010
  Serious: Yes (Hospitalization)
  Sender: FDA-Public Use
  Company Number: US-JNJFOC-20110405062

PATIENT
  Sex: Female

DRUGS (2)
  1. NUCYNTA [Suspect]
     Indication: PAIN
     Route: 048
  2. NUCYNTA [Suspect]
     Route: 048

REACTIONS (1)
  - INTESTINAL OBSTRUCTION [None]
